FAERS Safety Report 13220044 (Version 1)
Quarter: 2017Q1

REPORT INFORMATION
  Report Type: Other
  Country: US (occurrence: US)
  Receive Date: 20170211
  Receipt Date: 20170211
  Transmission Date: 20170428
  Serious: No
  Sender: FDA-Public Use
  Company Number: US-ACORDA-ACO_128419_2016

PATIENT
  Age: 52 Year
  Sex: Male

DRUGS (1)
  1. AMPYRA [Suspect]
     Active Substance: DALFAMPRIDINE
     Indication: PRODUCT USED FOR UNKNOWN INDICATION
     Dosage: UNK
     Route: 065

REACTIONS (8)
  - Adverse drug reaction [Unknown]
  - Coordination abnormal [Unknown]
  - Muscular weakness [Unknown]
  - Depression [Unknown]
  - Fatigue [Unknown]
  - Temperature intolerance [Unknown]
  - Depressed mood [Unknown]
  - Multiple sclerosis [Unknown]
